FAERS Safety Report 24303051 (Version 4)
Quarter: 2024Q4

REPORT INFORMATION
  Report Type: Report from Study
  Country: US (occurrence: US)
  Receive Date: 20240910
  Receipt Date: 20241118
  Transmission Date: 20250115
  Serious: No
  Sender: SUNOVION
  Company Number: US-SUMITOMO PHARMA SWITZERLAND GMBH-2024SPA001617

PATIENT

DRUGS (4)
  1. ORGOVYX [Suspect]
     Active Substance: RELUGOLIX
     Indication: Prostate cancer
     Dosage: 360 MG, SINGLE
     Route: 048
  2. ORGOVYX [Suspect]
     Active Substance: RELUGOLIX
     Dosage: 120 MG, QD
     Route: 048
  3. PAXIL [Concomitant]
     Active Substance: PAROXETINE HYDROCHLORIDE
  4. LACOSAMIDE [Concomitant]
     Active Substance: LACOSAMIDE

REACTIONS (9)
  - Faeces hard [Unknown]
  - Gingivitis [Unknown]
  - Abdominal discomfort [Unknown]
  - Insomnia [Unknown]
  - Fatigue [Unknown]
  - Hot flush [Unknown]
  - Diarrhoea [Unknown]
  - Headache [Unknown]
  - Product dose omission issue [Unknown]
